FAERS Safety Report 15966397 (Version 1)
Quarter: 2019Q1

REPORT INFORMATION
  Report Type: Spontaneous
  Country: US (occurrence: US)
  Receive Date: 20190214
  Receipt Date: 20190214
  Transmission Date: 20190418
  Serious: Yes (Disabling)
  Sender: FDA-Public Use
  Company Number: None

PATIENT
  Age: 31 Year
  Sex: Female
  Weight: 63 kg

DRUGS (5)
  1. TRIAMTERENE. [Concomitant]
     Active Substance: TRIAMTERENE
  2. TRAMADOL. [Concomitant]
     Active Substance: TRAMADOL
  3. LEXAPRO [Concomitant]
     Active Substance: ESCITALOPRAM OXALATE
  4. LORAZEPAM. [Concomitant]
     Active Substance: LORAZEPAM
  5. LUPRON DEPOT [Suspect]
     Active Substance: LEUPROLIDE ACETATE
     Indication: ENDOMETRIOSIS
     Route: 030
     Dates: start: 20150401, end: 20150701

REACTIONS (11)
  - Malaise [None]
  - Myalgia [None]
  - Fibromyalgia [None]
  - Decreased appetite [None]
  - Arthralgia [None]
  - Hypoacusis [None]
  - Dizziness [None]
  - Back pain [None]
  - Visual impairment [None]
  - Nausea [None]
  - Gait inability [None]

NARRATIVE: CASE EVENT DATE: 20150401
